FAERS Safety Report 22905341 (Version 13)
Quarter: 2025Q3

REPORT INFORMATION
  Report Type: Report from Study
  Country: US (occurrence: US)
  Receive Date: 20230905
  Receipt Date: 20250912
  Transmission Date: 20251020
  Serious: Yes (Other)
  Sender: TAKEDA
  Company Number: US-TAKEDA-2023TUS026958

PATIENT
  Age: 49 Year
  Sex: Female
  Weight: 47 kg

DRUGS (32)
  1. HUMAN IMMUNOGLOBULIN G [Suspect]
     Active Substance: HUMAN IMMUNOGLOBULIN G
     Indication: Polyneuropathy
  2. HUMAN IMMUNOGLOBULIN G [Suspect]
     Active Substance: HUMAN IMMUNOGLOBULIN G
     Indication: Fibromyalgia
     Dosage: 46 GRAM, Q3WEEKS
  3. HUMAN IMMUNOGLOBULIN G [Suspect]
     Active Substance: HUMAN IMMUNOGLOBULIN G
     Indication: Small fibre neuropathy
  4. HUMAN IMMUNOGLOBULIN G [Suspect]
     Active Substance: HUMAN IMMUNOGLOBULIN G
     Dosage: 1000 MILLIGRAM/KILOGRAM, Q3WEEKS
  5. HUMAN IMMUNOGLOBULIN G [Suspect]
     Active Substance: HUMAN IMMUNOGLOBULIN G
  6. HUMAN IMMUNOGLOBULIN G [Suspect]
     Active Substance: HUMAN IMMUNOGLOBULIN G
  7. BENADRYL [Suspect]
     Active Substance: DIPHENHYDRAMINE HYDROCHLORIDE
     Indication: Product used for unknown indication
  8. DIPHENHYDRAMINE HYDROCHLORIDE [Concomitant]
     Active Substance: DIPHENHYDRAMINE HYDROCHLORIDE
  9. SODIUM CHLORIDE [Concomitant]
     Active Substance: SODIUM CHLORIDE
  10. CHLORPHENIRAMINE MALEATE [Concomitant]
     Active Substance: CHLORPHENIRAMINE MALEATE
  11. EPINEPHRINE [Concomitant]
     Active Substance: EPINEPHRINE
  12. HYDROXYCHLOROQUINE SULFATE [Concomitant]
     Active Substance: HYDROXYCHLOROQUINE SULFATE
  13. ACETAMINOPHEN [Concomitant]
     Active Substance: ACETAMINOPHEN
  14. AIMOVIG [Concomitant]
     Active Substance: ERENUMAB-AOOE
  15. CALCIUM CARBONATE [Concomitant]
     Active Substance: CALCIUM CARBONATE
  16. FOLIC ACID [Concomitant]
     Active Substance: FOLIC ACID
  17. HEPARIN [Concomitant]
     Active Substance: HEPARIN SODIUM
  18. LIDOCAINE [Concomitant]
     Active Substance: LIDOCAINE
  19. UBRELVY [Concomitant]
     Active Substance: UBROGEPANT
  20. FLUAD QUADRIVALENT NOS [Concomitant]
     Active Substance: INFLUENZA VIRUS VACCINE
  21. CYCLOBENZAPRINE HYDROCHLORIDE [Concomitant]
     Active Substance: CYCLOBENZAPRINE HYDROCHLORIDE
  22. ARNUITY ELLIPTA [Concomitant]
     Active Substance: FLUTICASONE FUROATE
  23. NAPROXEN [Concomitant]
     Active Substance: NAPROXEN
  24. SELENIUM [Concomitant]
     Active Substance: SELENIUM
  25. CELECOXIB [Concomitant]
     Active Substance: CELECOXIB
  26. HUMIRA [Concomitant]
     Active Substance: ADALIMUMAB
  27. LIDOCAINE [Concomitant]
     Active Substance: LIDOCAINE
  28. CALCIUM ANTACID [Concomitant]
     Active Substance: CALCIUM CARBONATE
  29. AJOVY [Concomitant]
     Active Substance: FREMANEZUMAB-VFRM
  30. DIPHENHYDRAMINE [Concomitant]
     Active Substance: DIPHENHYDRAMINE
  31. DESVENLAFAXINE SUCCINATE [Concomitant]
     Active Substance: DESVENLAFAXINE SUCCINATE
  32. RINVOQ [Concomitant]
     Active Substance: UPADACITINIB

REACTIONS (21)
  - Neuropathy peripheral [Unknown]
  - Fibromyalgia [Unknown]
  - Phlebitis superficial [Unknown]
  - COVID-19 [Unknown]
  - Product use in unapproved indication [Unknown]
  - Sensitivity to weather change [Unknown]
  - Sleep disorder [Unknown]
  - Menopause [Unknown]
  - Influenza [Recovered/Resolved]
  - Infusion site erythema [Unknown]
  - Pain [Recovered/Resolved]
  - Abdominal pain lower [Unknown]
  - Pain in extremity [Recovering/Resolving]
  - Infusion site swelling [Unknown]
  - Chest discomfort [Unknown]
  - Arthralgia [Recovered/Resolved]
  - Hypotension [Unknown]
  - Fatigue [Unknown]
  - Migraine [Recovered/Resolved]
  - Nausea [Unknown]
  - Vomiting [Unknown]

NARRATIVE: CASE EVENT DATE: 20230227
